FAERS Safety Report 6881178-7 (Version None)
Quarter: 2010Q3

REPORT INFORMATION
  Report Type: 
  Country: None (occurrence: None)
  Receive Date: 20100727
  Receipt Date: 20100715
  Transmission Date: 20110219
  Serious: No
  Sender: FDA-Public Use
  Company Number: US-BIOGENIDEC-2010BI024463

PATIENT
  Sex: Female

DRUGS (3)
  1. TYSABRI [Suspect]
     Indication: MULTIPLE SCLEROSIS
     Route: 042
     Dates: start: 20061117, end: 20081121
  2. TYSABRI [Suspect]
     Route: 042
     Dates: start: 20090604
  3. AVONEX [Concomitant]
     Indication: MULTIPLE SCLEROSIS
     Route: 030
     Dates: start: 20010524

REACTIONS (4)
  - ARTHRALGIA [None]
  - COGNITIVE DISORDER [None]
  - MUSCLE TIGHTNESS [None]
  - OPTIC NEURITIS [None]
